FAERS Safety Report 4508265-2 (Version None)
Quarter: 2004Q4

REPORT INFORMATION
  Report Type: 
  Country: None (occurrence: None)
  Receive Date: 20041123
  Receipt Date: 20031204
  Transmission Date: 20050328
  Serious: No
  Sender: FDA-Public Use
  Company Number: US-GLAXOSMITHKLINE-A0442438A

PATIENT
  Age: 40 Year
  Sex: Male

DRUGS (2)
  1. WELLBUTRIN [Suspect]
     Indication: DEPRESSION
     Route: 048
     Dates: start: 20010101
  2. EFFEXOR [Suspect]
     Indication: DEPRESSION
     Route: 065

REACTIONS (1)
  - LIBIDO DECREASED [None]
